FAERS Safety Report 5469963-X (Version None)
Quarter: 2007Q3

REPORT INFORMATION
  Report Type: 
  Country: None (occurrence: None)
  Receive Date: 20070927
  Receipt Date: 20070912
  Transmission Date: 20080115
  Serious: Yes (Other)
  Sender: FDA-Public Use
  Company Number: ES-PFIZER INC-2007079315

PATIENT
  Age: 57 Year
  Sex: Male

DRUGS (2)
  1. CETIRIZINE/PSEUDOEPHEDRINE [Suspect]
     Indication: NASOPHARYNGITIS
     Route: 048
     Dates: start: 20070621, end: 20070621
  2. IBUPROFEN [Suspect]
     Indication: NASOPHARYNGITIS
     Route: 048
     Dates: start: 20070621, end: 20070621

REACTIONS (2)
  - BRONCHOSPASM [None]
  - FLUSHING [None]
